FAERS Safety Report 17005331 (Version 1)
Quarter: 2019Q4

REPORT INFORMATION
  Report Type: Spontaneous
  Country: HU (occurrence: HU)
  Receive Date: 20191107
  Receipt Date: 20191107
  Transmission Date: 20200122
  Serious: Yes (Other)
  Sender: FDA-Public Use
  Company Number: HU-GLAXOSMITHKLINE-HU2019EME198015

PATIENT

DRUGS (1)
  1. LAMOTRIGINE. [Suspect]
     Active Substance: LAMOTRIGINE
     Indication: EPILEPSY
     Dosage: UNK

REACTIONS (5)
  - Pyrexia [Unknown]
  - Rash maculo-papular [Unknown]
  - Nausea [Unknown]
  - Drug reaction with eosinophilia and systemic symptoms [Unknown]
  - Encephalitis autoimmune [Unknown]
